FAERS Safety Report 19622329 (Version 1)
Quarter: 2021Q3

REPORT INFORMATION
  Report Type: Spontaneous
  Country: KW (occurrence: KW)
  Receive Date: 20210728
  Receipt Date: 20210728
  Transmission Date: 20211014
  Serious: Yes (Other)
  Sender: FDA-Public Use
  Company Number: KW-ALS-000338

PATIENT
  Age: 15 Year
  Sex: Female

DRUGS (1)
  1. QUETIAPINE. [Suspect]
     Active Substance: QUETIAPINE
     Indication: BIPOLAR I DISORDER
     Route: 065

REACTIONS (8)
  - Sinus bradycardia [Unknown]
  - Idiopathic intracranial hypertension [Recovering/Resolving]
  - Intracranial pressure increased [Recovering/Resolving]
  - Papilloedema [Recovering/Resolving]
  - Abnormal weight gain [Recovering/Resolving]
  - Intracardiac pressure increased [Unknown]
  - Intra-abdominal pressure increased [Unknown]
  - Hypertriglyceridaemia [Unknown]
